FAERS Safety Report 17109606 (Version 1)
Quarter: 2019Q4

REPORT INFORMATION
  Report Type: Spontaneous
  Country: US (occurrence: US)
  Receive Date: 20191204
  Receipt Date: 20191204
  Transmission Date: 20200122
  Serious: Yes (Other)
  Sender: FDA-Public Use
  Company Number: US-MELINTA THERAPEUTICS, INC-US-MLNT-19-00212

PATIENT
  Age: 83 Year
  Sex: Female

DRUGS (1)
  1. VABOMERE [Suspect]
     Active Substance: MEROPENEM\VABORBACTAM
     Indication: KLEBSIELLA BACTERAEMIA
     Dosage: NOT PROVIDED.
     Route: 041

REACTIONS (3)
  - Drug ineffective for unapproved indication [Unknown]
  - Off label use [Unknown]
  - Device related infection [Unknown]
